FAERS Safety Report 7199242-4 (Version None)
Quarter: 2010Q4

REPORT INFORMATION
  Report Type: 
  Country: None (occurrence: None)
  Receive Date: 20101215
  Receipt Date: 20100225
  Transmission Date: 20110411
  Serious: Yes (Death)
  Sender: FDA-Public Use
  Company Number: UTC-002875

PATIENT
  Sex: Female

DRUGS (1)
  1. REMODULIN (INJECTION FOR INFUSION) (TREPROSTINIL SODIUM) [Suspect]
     Dosage: 60.48 UG./KG (0.042 UG/KG, 1 IN 1 MIN), SUBCUTANEOUS
     Route: 058

REACTIONS (1)
  - DEATH [None]
